FAERS Safety Report 8197567-7 (Version None)
Quarter: 2012Q1

REPORT INFORMATION
  Report Type: 
  Country: None (occurrence: None)
  Receive Date: 20120309
  Receipt Date: 20120305
  Transmission Date: 20120608
  Serious: Yes (Hospitalization, Other)
  Sender: FDA-Public Use
  Company Number: US-PFIZER INC-2012059008

PATIENT
  Sex: Female
  Weight: 70.295 kg

DRUGS (1)
  1. GEODON [Suspect]
     Indication: SCHIZOPHRENIA, PARANOID TYPE
     Dosage: 80 MG, 2X/DAY
     Route: 048

REACTIONS (2)
  - SCHIZOPHRENIA, PARANOID TYPE [None]
  - HALLUCINATION, AUDITORY [None]
